FAERS Safety Report 7468941-9 (Version None)
Quarter: 2011Q2

REPORT INFORMATION
  Report Type: 
  Country: None (occurrence: None)
  Receive Date: 20110428
  Receipt Date: 20110418
  Transmission Date: 20111010
  Serious: Yes (Hospitalization)
  Sender: FDA-Public Use
  Company Number: 2010SP025097

PATIENT
  Age: 27 Year
  Sex: Female
  Weight: 63.5036 kg

DRUGS (2)
  1. NUVARING [Suspect]
     Indication: CONTRACEPTION
     Dates: start: 20080320, end: 20080430
  2. DEPO-PROVERA [Suspect]
     Indication: CONTRACEPTION
     Dates: end: 20080301

REACTIONS (4)
  - PLEURAL EFFUSION [None]
  - PULMONARY EMBOLISM [None]
  - URINE ANALYSIS ABNORMAL [None]
  - DYSMENORRHOEA [None]
